FAERS Safety Report 15900997 (Version 1)
Quarter: 2019Q1

REPORT INFORMATION
  Report Type: Spontaneous
  Country: FR (occurrence: FR)
  Receive Date: 20190201
  Receipt Date: 20190201
  Transmission Date: 20190417
  Serious: Yes (Hospitalization, Other)
  Sender: FDA-Public Use
  Company Number: FR-009507513-1901FRA009320

PATIENT
  Sex: Male

DRUGS (2)
  1. LIPTRUZET [Suspect]
     Active Substance: ATORVASTATIN CALCIUM\EZETIMIBE
     Indication: LOW DENSITY LIPOPROTEIN DECREASED
     Dosage: STRENGTH: 10/40 (UNITS UNSPECIFIED), 1 TABLET, QPM (IN THE EVENING)
     Route: 048
     Dates: start: 201809, end: 20181231
  2. VALSARTAN. [Concomitant]
     Active Substance: VALSARTAN
     Dosage: DAILY

REACTIONS (3)
  - Cholecystitis [Recovering/Resolving]
  - Hepatocellular injury [Recovering/Resolving]
  - Pruritus generalised [Unknown]

NARRATIVE: CASE EVENT DATE: 2018
